FAERS Safety Report 10497623 (Version 4)
Quarter: 2015Q1

REPORT INFORMATION
  Report Type: Spontaneous
  Country: DE (occurrence: None)
  Receive Date: 20141002
  Receipt Date: 20150316
  Transmission Date: 20150720
  Serious: Yes (Other)
  Sender: FDA-Public Use
  Company Number: 2014-20397

PATIENT
  Age: 81 Year
  Sex: Male
  Weight: 91 kg

DRUGS (1)
  1. EYLEA [Suspect]
     Active Substance: AFLIBERCEPT
     Indication: AGE-RELATED MACULAR DEGENERATION
     Route: 031
     Dates: start: 20130116, end: 20130116

REACTIONS (10)
  - Pain [None]
  - Visual impairment [None]
  - Inappropriate schedule of drug administration [None]
  - Headache [None]
  - Lacrimation increased [None]
  - Loss of visual contrast sensitivity [None]
  - Blindness [None]
  - Intraocular pressure increased [None]
  - Eye injury [None]
  - Decubitus ulcer [None]

NARRATIVE: CASE EVENT DATE: 2013
